FAERS Safety Report 9214809 (Version 3)
Quarter: 2013Q2

REPORT INFORMATION
  Report Type: Spontaneous
  Country: JP (occurrence: JP)
  Receive Date: 20130405
  Receipt Date: 20130423
  Transmission Date: 20140414
  Serious: Yes (Death)
  Sender: FDA-Public Use
  Company Number: JP-009507513-1304JPN001076

PATIENT
  Age: 77 Year
  Sex: Female
  Weight: 39 kg

DRUGS (16)
  1. DIAZOXIDE CAPSULES 25 MG?MSD? [Suspect]
     Indication: HYPOGLYCAEMIA
     Dosage: 75 MG, BID
     Route: 048
     Dates: start: 20130307, end: 20130318
  2. DIAZOXIDE CAPSULES 25 MG?MSD? [Suspect]
     Dosage: 50 MG, BID
     Route: 048
     Dates: start: 20130319, end: 20130322
  3. DIAZOXIDE CAPSULES 25 MG?MSD? [Suspect]
     Dosage: 25-0-50 MG, BID
     Route: 048
     Dates: start: 20130323
  4. LASIX (FUROSEMIDE) [Concomitant]
     Indication: CARDIAC FAILURE
     Dosage: 20 MG, QD
     Dates: start: 20130319, end: 20130321
  5. LASIX (FUROSEMIDE) [Concomitant]
     Dosage: 60 MG, QD
     Route: 048
     Dates: start: 20130322
  6. LASIX (FUROSEMIDE) [Concomitant]
     Dosage: 60MG-0-40MG TABLETS
     Route: 048
     Dates: end: 20130323
  7. ALDACTONE A [Concomitant]
     Indication: CARDIAC FAILURE
     Dosage: 25 MG, QD
     Route: 048
     Dates: end: 20130323
  8. LANIRAPID [Concomitant]
     Indication: CARDIAC FAILURE
     Dosage: 0.25 MG, QD
     Route: 048
     Dates: end: 20130323
  9. FLUITRAN [Concomitant]
     Indication: CARDIAC FAILURE
     Dosage: 1 MG, QD
     Route: 048
     Dates: end: 20130323
  10. VASOLAN [Concomitant]
     Indication: ATRIAL FIBRILLATION
     Dosage: 40 MG, QD
     Route: 048
     Dates: end: 20130323
  11. WARFARIN POTASSIUM [Concomitant]
     Indication: ATRIAL FIBRILLATION
     Dosage: 1.5 MG, QD
     Route: 048
     Dates: end: 20130323
  12. PROTECADIN [Concomitant]
     Indication: GASTRIC DISORDER
     Dosage: 10 MG, BID
     Route: 048
     Dates: end: 20130323
  13. DEPAS [Concomitant]
     Indication: ANXIETY
     Dosage: 0.5 MG, QD
     Route: 048
     Dates: end: 20130323
  14. DECADRON (DEXAMETHASONE) [Concomitant]
     Indication: HYPOGLYCAEMIA
     Dosage: 0.25 MG, QD
     Route: 048
     Dates: end: 20130305
  15. MAGMITT [Concomitant]
     Indication: CONSTIPATION
     Dosage: 2000 MG, QD
     Route: 048
     Dates: end: 20130323
  16. DEXTROSE [Concomitant]
     Dosage: 1000 ML, QD
     Route: 051
     Dates: start: 20130228, end: 20130316

REACTIONS (1)
  - Cardiac failure [Fatal]
